FAERS Safety Report 11497534 (Version 5)
Quarter: 2016Q2

REPORT INFORMATION
  Report Type: Spontaneous
  Country: US (occurrence: US)
  Receive Date: 20150911
  Receipt Date: 20160630
  Transmission Date: 20160815
  Serious: Yes (Disabling, Other)
  Sender: FDA-Public Use
  Company Number: US-PFIZER INC-2015233142

PATIENT
  Age: 55 Year
  Sex: Female
  Weight: 104 kg

DRUGS (16)
  1. NITROSTAT [Concomitant]
     Active Substance: NITROGLYCERIN
     Indication: CARDIAC DISORDER
     Dosage: 0.4 MG, 1X/DAY
  2. TOPAMAC [Concomitant]
     Active Substance: TOPIRAMATE
     Indication: HEADACHE
     Dosage: 100 MG, 2X/DAY
  3. VITAMIN D3 [Concomitant]
     Active Substance: CHOLECALCIFEROL
     Dosage: 2000 IU, 1X/DAY
  4. RIZATRIPTAN. [Concomitant]
     Active Substance: RIZATRIPTAN
     Dosage: 10 MG, EVERY TWO HOURS, MAX THREE TIMES A DAY)
  5. BUTAL/ACETAMIN/CF [Concomitant]
     Indication: PAIN
     Dosage: 50-325-40 MG TAB, ONE TAB TWICE DAILY AS NEEDED
     Route: 048
  6. LYRICA [Suspect]
     Active Substance: PREGABALIN
     Indication: MIGRAINE
     Dosage: 150 MG, 2X/DAY
  7. BABY ASPIRIN [Concomitant]
     Active Substance: ASPIRIN
     Indication: CARDIAC DISORDER
     Dosage: 81 MG, UNK
  8. RELPAX [Suspect]
     Active Substance: ELETRIPTAN HYDROBROMIDE
     Indication: MIGRAINE
     Dosage: 40 MG, 2X/DAY
  9. VITAMINS [Concomitant]
     Active Substance: VITAMINS
     Dosage: 1 DF, DAILY
  10. LEVOTHYROXINE. [Concomitant]
     Active Substance: LEVOTHYROXINE
     Indication: THYROID DISORDER
     Dosage: 150 UG, 1X/DAY
  11. LYRICA [Suspect]
     Active Substance: PREGABALIN
     Indication: NEUROPATHY PERIPHERAL
  12. ISOMETH/ACETAMIN DICHLOR [Concomitant]
     Indication: MIGRAINE
     Dosage: UNK, AS NEEDED (TAKE NOT MORE THAN 8 A DAY)
  13. VITAMIN B [Concomitant]
     Active Substance: VITAMIN B
     Indication: VITAMIN B COMPLEX DEFICIENCY
     Dosage: UNK
  14. RELPAX [Suspect]
     Active Substance: ELETRIPTAN HYDROBROMIDE
     Dosage: 40 MG, (MOSTLY TWICE A DAY BUT NO MORE THAN FOUR TIMES A WEEK)
  15. TRAMADOL. [Concomitant]
     Active Substance: TRAMADOL
     Indication: NEURALGIA
     Dosage: 50 MG, AS NEEDED (4 TIMES A DAY)
  16. ZOFRAN [Concomitant]
     Active Substance: ONDANSETRON HYDROCHLORIDE
     Indication: NAUSEA
     Dosage: 4 MG, AS NEEDED

REACTIONS (21)
  - Transient ischaemic attack [Unknown]
  - Abasia [Unknown]
  - Depressed mood [Unknown]
  - Cerebrovascular accident [Unknown]
  - Cerebrovascular disorder [Unknown]
  - Neoplasm malignant [Unknown]
  - Gammopathy [Unknown]
  - Urinary retention [Unknown]
  - Neuropathy peripheral [Unknown]
  - Fall [Unknown]
  - Condition aggravated [Unknown]
  - Headache [Unknown]
  - Disturbance in attention [Unknown]
  - Weight decreased [Unknown]
  - Confusional state [Unknown]
  - Migraine [Unknown]
  - Central nervous system lesion [Unknown]
  - Memory impairment [Unknown]
  - Diplopia [Unknown]
  - Non-Hodgkin^s lymphoma [Unknown]
  - Vision blurred [Unknown]
